FAERS Safety Report 6386629-2 (Version None)
Quarter: 2009Q3

REPORT INFORMATION
  Report Type: 
  Country: None (occurrence: None)
  Receive Date: 20090930
  Receipt Date: 20090930
  Transmission Date: 20100115
  Serious: No
  Sender: FDA-Public Use
  Company Number: None

PATIENT
  Age: 51 Year
  Sex: Female
  Weight: 82.4 kg

DRUGS (1)
  1. RIBAVIRIN [Suspect]
     Indication: HEPATITIS C
     Dosage: 1 GM EVERY DAY PO
     Route: 048
     Dates: start: 20090528

REACTIONS (3)
  - ANAEMIA [None]
  - GASTRIC ULCER [None]
  - WOUND SECRETION [None]
